FAERS Safety Report 17088194 (Version 4)
Quarter: 2019Q4

REPORT INFORMATION
  Report Type: Spontaneous
  Country: US (occurrence: US)
  Receive Date: 20191128
  Receipt Date: 20191224
  Transmission Date: 20200122
  Serious: Yes (Hospitalization)
  Sender: FDA-Public Use
  Company Number: US-PFIZER INC-2019512453

PATIENT
  Age: 59 Year
  Sex: Male

DRUGS (5)
  1. PANADOL [Suspect]
     Active Substance: ACETAMINOPHEN
     Indication: INFLUENZA LIKE ILLNESS
     Dosage: 2 DF OF [PARACETAMOL 500 MG]/[ PHENYLEPHRINE HYDROCHLORIDE5 MG] EVERY 4-6 HOURS AS NEEDED
     Route: 048
     Dates: start: 20191118, end: 20191122
  2. PANADOL [Suspect]
     Active Substance: ACETAMINOPHEN
     Indication: PYREXIA
  3. AZITHROMYCIN ANHYDROUS. [Suspect]
     Active Substance: AZITHROMYCIN ANHYDROUS
     Indication: INFLUENZA LIKE ILLNESS
     Dosage: 500 MG, DAILY
     Route: 048
     Dates: start: 20191118, end: 20191122
  4. LOSARTAN. [Concomitant]
     Active Substance: LOSARTAN
     Indication: HYPERTENSION
     Dosage: 100 MG, DAILY
  5. AZITHROMYCIN ANHYDROUS. [Suspect]
     Active Substance: AZITHROMYCIN ANHYDROUS
     Indication: PYREXIA

REACTIONS (7)
  - Hemiparesis [Recovered/Resolved]
  - Fatigue [Recovered/Resolved]
  - Neurological symptom [Recovered/Resolved]
  - Blood pressure increased [Recovered/Resolved]
  - Headache [Recovered/Resolved]
  - Vision blurred [Recovered/Resolved]
  - Paraesthesia [Recovered/Resolved]

NARRATIVE: CASE EVENT DATE: 20191121
